FAERS Safety Report 7646403-3 (Version None)
Quarter: 2011Q3

REPORT INFORMATION
  Report Type: 
  Country: None (occurrence: None)
  Receive Date: 20110801
  Receipt Date: 20110721
  Transmission Date: 20111222
  Serious: Yes (Hospitalization)
  Sender: FDA-Public Use
  Company Number: CH-JNJFOC-20110708048

PATIENT
  Age: 71 Year
  Sex: Male

DRUGS (4)
  1. HALDOL [Suspect]
     Indication: BIPOLAR DISORDER
     Route: 048
  2. LORAZEPAM [Suspect]
     Indication: BIPOLAR DISORDER
     Route: 048
  3. SEROQUEL [Suspect]
     Indication: BIPOLAR DISORDER
     Route: 048
  4. ZOLOFT [Suspect]
     Indication: BIPOLAR DISORDER
     Route: 048

REACTIONS (5)
  - MENTAL DISORDER [None]
  - ACCIDENTAL OVERDOSE [None]
  - LOSS OF CONSCIOUSNESS [None]
  - SOMNOLENCE [None]
  - SUICIDAL IDEATION [None]
